FAERS Safety Report 4822120-X (Version None)
Quarter: 2005Q4

REPORT INFORMATION
  Report Type: 
  Country: None (occurrence: None)
  Receive Date: 20051103
  Receipt Date: 20051013
  Transmission Date: 20060501
  Serious: Yes (Death, Other)
  Sender: FDA-Public Use
  Company Number: JP_050907703

PATIENT
  Age: 82 Year
  Sex: Male
  Weight: 38 kg

DRUGS (6)
  1. GEMZAR [Suspect]
     Indication: NON-SMALL CELL LUNG CANCER
     Dosage: 1000 MG OTHER
     Dates: start: 20050830, end: 20050915
  2. CARBOPLATIN [Concomitant]
  3. GASTER D /JPN/ (FAMOTIDINE) [Concomitant]
  4. LASIX [Concomitant]
  5. ASPARA K (ASPARTATE POTASSIUM) [Concomitant]
  6. TOLEDOMIN (MILNACIPRAN HYDROCHLORIDE) [Concomitant]

REACTIONS (12)
  - ABDOMINAL PAIN [None]
  - ANAEMIA [None]
  - ANXIETY [None]
  - AORTIC ANEURYSM [None]
  - ASTHENIA [None]
  - CARDIO-RESPIRATORY ARREST [None]
  - DECREASED APPETITE [None]
  - HAEMOGLOBIN DECREASED [None]
  - PLATELET COUNT DECREASED [None]
  - RED BLOOD CELL COUNT DECREASED [None]
  - REFUSAL OF TREATMENT BY RELATIVE [None]
  - SUDDEN DEATH [None]
